FAERS Safety Report 13239102 (Version 1)
Quarter: 2017Q1

REPORT INFORMATION
  Report Type: Spontaneous
  Country: US (occurrence: US)
  Receive Date: 20170216
  Receipt Date: 20170216
  Transmission Date: 20170428
  Serious: Yes (Other)
  Sender: FDA-Public Use
  Company Number: US-SA-2017SA023636

PATIENT
  Age: 60 Year
  Sex: Female

DRUGS (5)
  1. SEVELAMER SALT NOT SPECIFIED [Suspect]
     Active Substance: SEVELAMER
     Indication: HYPERPHOSPHATAEMIA
     Route: 065
  2. SEVELAMER SALT NOT SPECIFIED [Suspect]
     Active Substance: SEVELAMER
     Indication: HYPERPHOSPHATAEMIA
     Route: 065
  3. SIROLIMUS. [Concomitant]
     Active Substance: SIROLIMUS
  4. TACROLIMUS. [Concomitant]
     Active Substance: TACROLIMUS
  5. TRIMETHOPRIM/SULFAMETHOXAZOLE [Concomitant]

REACTIONS (9)
  - Large intestinal ulcer [Unknown]
  - Gastrointestinal mucosal disorder [Unknown]
  - Gastrointestinal inflammation [Unknown]
  - Diarrhoea [Unknown]
  - Crystal deposit intestine [Unknown]
  - Abdominal pain [Unknown]
  - Gastrointestinal sounds abnormal [Unknown]
  - Abdominal tenderness [Unknown]
  - Gastrointestinal mucosa hyperaemia [Unknown]
